FAERS Safety Report 8350413-0 (Version None)
Quarter: 2012Q2

REPORT INFORMATION
  Report Type: 
  Country: None (occurrence: None)
  Receive Date: 20120510
  Receipt Date: 20120427
  Transmission Date: 20120825
  Serious: Yes (Other)
  Sender: FDA-Public Use
  Company Number: JP-VERTEX PHARMACEUTICALS INC.-AE-2012-006655

PATIENT
  Age: 38 Year
  Sex: Male

DRUGS (7)
  1. PEGINTERFERON ALFA-2B [Concomitant]
     Indication: HEPATITIS C
     Route: 051
     Dates: start: 20120302, end: 20120323
  2. URSO 250 [Concomitant]
  3. PEGINTERFERON ALFA-2B [Concomitant]
     Dates: start: 20120330
  4. LOXONIN [Concomitant]
  5. TELAVIC (TELAPREVIR) [Suspect]
     Indication: HEPATITIS C
     Route: 048
     Dates: start: 20120302
  6. RIBAVIRIN [Concomitant]
     Indication: HEPATITIS C
     Route: 048
     Dates: start: 20120302
  7. PEGINTERFERON ALFA-2B [Concomitant]
     Dates: start: 20120323, end: 20120330

REACTIONS (1)
  - NEUTROPHIL COUNT DECREASED [None]
